FAERS Safety Report 25249614 (Version 3)
Quarter: 2025Q3

REPORT INFORMATION
  Report Type: Report from Study
  Country: US (occurrence: US)
  Receive Date: 20250429
  Receipt Date: 20250929
  Transmission Date: 20251020
  Serious: Yes (Hospitalization, Other)
  Sender: SUNOVION
  Company Number: US-SUMITOMO PHARMA SWITZERLAND GMBH-2025SPA004800

PATIENT
  Age: 84 Year
  Sex: Male

DRUGS (2)
  1. ORGOVYX [Suspect]
     Active Substance: RELUGOLIX
     Indication: Prostate cancer
     Route: 048
     Dates: start: 20250130, end: 20250130
  2. ORGOVYX [Suspect]
     Active Substance: RELUGOLIX
     Dosage: 120 MG, QD
     Route: 048
     Dates: start: 20250131

REACTIONS (10)
  - Hip arthroplasty [Unknown]
  - Diverticulitis [Unknown]
  - Mental disorder [Unknown]
  - Peripheral swelling [Recovering/Resolving]
  - Decreased activity [Unknown]
  - Hypotonia [Unknown]
  - Muscular weakness [Unknown]
  - Urinary incontinence [Unknown]
  - Hot flush [Unknown]
  - Weight increased [Unknown]
